FAERS Safety Report 6419154-0 (Version None)
Quarter: 2009Q4

REPORT INFORMATION
  Report Type: 
  Country: None (occurrence: None)
  Receive Date: 20091028
  Receipt Date: 20091028
  Transmission Date: 20100525
  Serious: Yes (Death)
  Sender: FDA-Public Use
  Company Number: None

PATIENT
  Age: 81 Year
  Sex: Female
  Weight: 89.9 kg

DRUGS (1)
  1. DRONEDARONE 400 MG SANOUFI AVENTIS [Suspect]
     Indication: ATRIAL FIBRILLATION
     Dosage: 400 MG BID PO
     Route: 048
     Dates: start: 20091008, end: 20091012

REACTIONS (13)
  - ALANINE AMINOTRANSFERASE INCREASED [None]
  - ASPARTATE AMINOTRANSFERASE INCREASED [None]
  - ATRIAL FIBRILLATION [None]
  - BLOOD ALKALINE PHOSPHATASE INCREASED [None]
  - BLOOD BILIRUBIN INCREASED [None]
  - CARDIO-RESPIRATORY ARREST [None]
  - FLUID IMBALANCE [None]
  - NAUSEA [None]
  - PNEUMONIA ASPIRATION [None]
  - RENAL FAILURE ACUTE [None]
  - RENAL FAILURE CHRONIC [None]
  - UNRESPONSIVE TO STIMULI [None]
  - URINARY TRACT INFECTION [None]
